FAERS Safety Report 7130335-3 (Version None)
Quarter: 2010Q4

REPORT INFORMATION
  Report Type: 
  Country: None (occurrence: None)
  Receive Date: 20101201
  Receipt Date: 20101118
  Transmission Date: 20110411
  Serious: Yes (Hospitalization, Other)
  Sender: FDA-Public Use
  Company Number: PHHY2009JP38506

PATIENT
  Sex: Male
  Weight: 57 kg

DRUGS (11)
  1. ZOMETA [Suspect]
     Indication: MULTIPLE MYELOMA
     Dosage: 4 MG SINGLE DOSE
     Route: 042
     Dates: start: 20090902, end: 20090902
  2. ZOMETA [Suspect]
     Dosage: UNK
  3. OXYCONTIN [Concomitant]
     Dosage: UNK
     Route: 048
     Dates: start: 20090902
  4. NSAID'S [Concomitant]
     Route: 048
  5. VOLTAREN [Concomitant]
     Indication: PAIN
     Dosage: 75 MG, UNK
     Route: 048
  6. TERNELIN [Concomitant]
     Indication: PAIN
     Dosage: 3 MG, UNK
     Route: 048
     Dates: end: 20090905
  7. MUCOSTA [Concomitant]
     Dosage: 300 MG, UNK
     Route: 048
  8. SENNOSIDE [Concomitant]
     Indication: CONSTIPATION
     Dosage: 24 MG, UNK
     Route: 048
     Dates: start: 20090901
  9. OXINORM [Concomitant]
     Indication: PAIN
     Dosage: 5 MG, UNK
     Route: 048
     Dates: start: 20090831
  10. MAGNESIUM OXIDE [Concomitant]
     Indication: CONSTIPATION
     Dosage: 990 MG, UNK
     Route: 048
     Dates: start: 20090831
  11. NOVAMIN [Concomitant]
     Indication: NAUSEA
     Dosage: 15 MG, UNK
     Route: 048
     Dates: start: 20090831, end: 20090924

REACTIONS (16)
  - ALANINE AMINOTRANSFERASE INCREASED [None]
  - ASPARTATE AMINOTRANSFERASE INCREASED [None]
  - BLOOD LACTATE DEHYDROGENASE INCREASED [None]
  - C-REACTIVE PROTEIN INCREASED [None]
  - CARDIOMEGALY [None]
  - DYSPNOEA [None]
  - GAMMA-GLUTAMYLTRANSFERASE INCREASED [None]
  - LYMPHOCYTE COUNT DECREASED [None]
  - NEUTROPHIL COUNT INCREASED [None]
  - OROPHARYNGEAL DISCOMFORT [None]
  - PLATELET COUNT INCREASED [None]
  - PULMONARY OEDEMA [None]
  - PYREXIA [None]
  - STEM CELL TRANSPLANT [None]
  - TUMOUR LYSIS SYNDROME [None]
  - WHEEZING [None]
